FAERS Safety Report 7232968-2 (Version None)
Quarter: 2011Q1

REPORT INFORMATION
  Report Type: 
  Country: None (occurrence: None)
  Receive Date: 20110119
  Receipt Date: 20110105
  Transmission Date: 20110831
  Serious: Yes (Death, Hospitalization)
  Sender: FDA-Public Use
  Company Number: US-ACTELION-A-US2009-27466

PATIENT

DRUGS (5)
  1. DIURETICS [Concomitant]
  2. CALCIUM CHANNEL BLOCKERS [Concomitant]
  3. COUMADIN [Concomitant]
  4. TADALAFIL [Suspect]
  5. BOSENTAN TABLET UNKNOWN US MG [Suspect]
     Indication: PULMONARY ARTERIAL HYPERTENSION
     Dosage: UNK MG, UNK
     Route: 048
     Dates: start: 20070711

REACTIONS (8)
  - ASTHMA [None]
  - RENAL DISORDER [None]
  - GOUT [None]
  - DYSPNOEA [None]
  - ASCITES [None]
  - PULMONARY HYPERTENSION [None]
  - COR PULMONALE [None]
  - OEDEMA [None]
